FAERS Safety Report 5311879-3 (Version None)
Quarter: 2007Q2

REPORT INFORMATION
  Report Type: 
  Country: None (occurrence: None)
  Receive Date: 20070427
  Receipt Date: 20070427
  Transmission Date: 20071010
  Serious: Yes (Hospitalization)
  Sender: FDA-Public Use
  Company Number: None

PATIENT
  Sex: Male
  Weight: 80.7403 kg

DRUGS (2)
  1. SINEMET [Suspect]
     Indication: GAIT DISTURBANCE
     Dosage: 25/250  BID  PO
     Route: 048
     Dates: start: 20070401, end: 20070406
  2. SINEMET [Suspect]
     Indication: PARKINSON'S DISEASE
     Dosage: 25/250  BID  PO
     Route: 048
     Dates: start: 20070401, end: 20070406

REACTIONS (9)
  - ABASIA [None]
  - ABNORMAL BEHAVIOUR [None]
  - ACTIVITIES OF DAILY LIVING IMPAIRED [None]
  - AGGRESSION [None]
  - BRADYKINESIA [None]
  - MOOD ALTERED [None]
  - MOVEMENT DISORDER [None]
  - PARANOIA [None]
  - TRISMUS [None]
